FAERS Safety Report 23116615 (Version 5)
Quarter: 2024Q2

REPORT INFORMATION
  Report Type: Report from Study
  Country: US (occurrence: US)
  Receive Date: 20231027
  Receipt Date: 20240422
  Transmission Date: 20240716
  Serious: Yes (Other)
  Sender: FDA-Public Use
  Company Number: US-ARGENX-2023-ARGX-US003643

PATIENT

DRUGS (2)
  1. VYVGART [Suspect]
     Active Substance: EFGARTIGIMOD ALFA-FCAB
     Indication: Myasthenia gravis
     Dosage: UNK, FIRST CYCLE
     Route: 042
     Dates: start: 20231023
  2. VYVGART [Suspect]
     Active Substance: EFGARTIGIMOD ALFA-FCAB
     Dosage: UNK, SECOND CYCLE
     Route: 042
     Dates: start: 20231218

REACTIONS (7)
  - Foot fracture [Unknown]
  - Fall [Unknown]
  - Tinnitus [Unknown]
  - Therapy interrupted [Unknown]
  - Paraesthesia [Unknown]
  - Headache [Unknown]
  - Therapy non-responder [Unknown]
